FAERS Safety Report 18556497 (Version 1)
Quarter: 2020Q4

REPORT INFORMATION
  Report Type: Spontaneous
  Country: US (occurrence: US)
  Receive Date: 20201128
  Receipt Date: 20201128
  Transmission Date: 20210114
  Serious: Yes (Hospitalization)
  Sender: FDA-Public Use
  Company Number: US-009507513-2011USA015490

PATIENT
  Sex: Male

DRUGS (2)
  1. PRINIVIL [Suspect]
     Active Substance: LISINOPRIL
  2. TIVICAY [Suspect]
     Active Substance: DOLUTEGRAVIR SODIUM
     Indication: HIV INFECTION
     Route: 048

REACTIONS (2)
  - Dyspnoea [Unknown]
  - Angioedema [Unknown]
